FAERS Safety Report 9207102 (Version 2)
Quarter: 2013Q2

REPORT INFORMATION
  Report Type: Spontaneous
  Country: US (occurrence: US)
  Receive Date: 20130403
  Receipt Date: 20130611
  Transmission Date: 20140414
  Serious: Yes (Hospitalization, Disabling, Other)
  Sender: FDA-Public Use
  Company Number: US-009507513-1303USA012851

PATIENT
  Sex: Female
  Weight: 104.31 kg

DRUGS (1)
  1. NUVARING [Suspect]
     Indication: CONTRACEPTION
     Dosage: UNK
     Route: 067
     Dates: start: 201010, end: 201206

REACTIONS (4)
  - Pulmonary embolism [Unknown]
  - Pain in extremity [Recovered/Resolved]
  - Hypertension [Unknown]
  - Antinuclear antibody increased [Unknown]
